FAERS Safety Report 4878176-1 (Version None)
Quarter: 2005Q4

REPORT INFORMATION
  Report Type: 
  Country: None (occurrence: None)
  Receive Date: 20051209
  Receipt Date: 20050818
  Transmission Date: 20060501
  Serious: Yes (Other)
  Sender: FDA-Public Use
  Company Number: USA-2003-0012155

PATIENT
  Sex: Female

DRUGS (3)
  1. OXYCONTIN [Suspect]
     Indication: PAIN
  2. LORTAB [Concomitant]
  3. CELEBREX [Concomitant]

REACTIONS (19)
  - ANXIETY [None]
  - ARTHRALGIA [None]
  - BODY TEMPERATURE INCREASED [None]
  - CONSTIPATION [None]
  - CREPITATIONS [None]
  - DEPRESSION [None]
  - DRUG DEPENDENCE [None]
  - DRUG WITHDRAWAL SYNDROME [None]
  - FLUID RETENTION [None]
  - GASTROINTESTINAL DISORDER [None]
  - JOINT SWELLING [None]
  - NAUSEA [None]
  - PAIN [None]
  - PAIN IN EXTREMITY [None]
  - PHARYNGEAL ERYTHEMA [None]
  - PHARYNGOLARYNGEAL PAIN [None]
  - TENDERNESS [None]
  - VOMITING [None]
  - WEIGHT DECREASED [None]
